FAERS Safety Report 24305187 (Version 1)
Quarter: 2024Q3

REPORT INFORMATION
  Report Type: Spontaneous
  Country: US (occurrence: US)
  Receive Date: 20240911
  Receipt Date: 20240911
  Transmission Date: 20241016
  Serious: Yes (Hospitalization, Other)
  Sender: NOVO NORDISK
  Company Number: US-NOVOPROD-1277969

PATIENT
  Age: 81 Year
  Sex: Male

DRUGS (1)
  1. OZEMPIC [Suspect]
     Active Substance: SEMAGLUTIDE
     Indication: Product used for unknown indication
     Dosage: 0.25 MG
     Route: 058
     Dates: start: 2024

REACTIONS (4)
  - Deep vein thrombosis [Recovering/Resolving]
  - Heart rate irregular [Recovered/Resolved]
  - Increased need for sleep [Not Recovered/Not Resolved]
  - Intentional dose omission [Not Recovered/Not Resolved]
